FAERS Safety Report 4345688-9 (Version None)
Quarter: 2004Q2

REPORT INFORMATION
  Report Type: 
  Country: None (occurrence: None)
  Receive Date: 20040421
  Receipt Date: 20031111
  Transmission Date: 20050107
  Serious: Yes (Life-Threatening)
  Sender: FDA-Public Use
  Company Number: 2003-119

PATIENT
  Age: 62 Year
  Sex: Female
  Weight: 62.5964 kg

DRUGS (12)
  1. METRONIDAZOLE [Suspect]
     Indication: DIVERTICULUM
     Dates: start: 20030926
  2. METRONIDAZOLE [Suspect]
     Indication: IRRITABLE BOWEL SYNDROME
     Dates: start: 20030926
  3. CLIMARA [Concomitant]
  4. PROGESTERONE/TESTOSTERONE [Concomitant]
  5. BACITRACIN OPHTHALMIC [Concomitant]
  6. HYOSCYAMINE [Concomitant]
  7. COQ10 [Concomitant]
  8. VITAMIN E [Concomitant]
  9. VITAMIN C [Concomitant]
  10. CLA [Concomitant]
  11. ALA [Concomitant]
  12. DIGESTIVE ENZYMES [Concomitant]

REACTIONS (6)
  - DIZZINESS [None]
  - DYSPNOEA [None]
  - PANIC ATTACK [None]
  - THROAT TIGHTNESS [None]
  - TREMOR [None]
  - URTICARIA [None]
